FAERS Safety Report 4592057-2 (Version None)
Quarter: 2005Q1

REPORT INFORMATION
  Report Type: 
  Country: None (occurrence: None)
  Receive Date: 20050225
  Receipt Date: 20050218
  Transmission Date: 20050727
  Serious: Yes (Hospitalization)
  Sender: FDA-Public Use
  Company Number: ES-GLAXOSMITHKLINE-B0372873A

PATIENT
  Age: 68 Year
  Sex: Male

DRUGS (10)
  1. AMOXICILLIN AND CLAVULANATE POTASSIUM [Suspect]
     Indication: PHARYNGOTONSILLITIS
     Route: 065
     Dates: start: 20041027
  2. LEVOFLOXACIN [Suspect]
     Route: 065
     Dates: start: 20041115, end: 20041117
  3. INTERMEDIATE/LONG-ACTING INSULIN [Concomitant]
     Route: 065
  4. NIFEDIPINE [Concomitant]
     Route: 065
  5. FUROSEMIDE [Concomitant]
     Route: 065
  6. CARVEDILOL [Concomitant]
     Route: 065
  7. NITROGLYCERIN [Concomitant]
     Route: 065
  8. PANTOPRAZOLE [Concomitant]
     Route: 065
  9. EPOGEN [Concomitant]
     Route: 065
  10. CALCIUM CARBONATE [Concomitant]
     Route: 065

REACTIONS (4)
  - ABNORMAL CHEST SOUND [None]
  - DYSPNOEA [None]
  - LIVER DISORDER [None]
  - ORTHOPNOEA [None]
